FAERS Safety Report 17223509 (Version 1)
Quarter: 2019Q4

REPORT INFORMATION
  Report Type: Spontaneous
  Country: US (occurrence: US)
  Receive Date: 20191209
  Receipt Date: 20191209
  Transmission Date: 20200122
  Serious: Yes (Life-Threatening, Hospitalization)
  Sender: FDA-Public Use
  Company Number: None

PATIENT
  Age: 59 Year
  Sex: Male

DRUGS (1)
  1. SULFAMETHOXAZOLE/TRIMETHOPRIM SULFAMETHOXAZOLE 800MG/TRIMETHOPRIM 16M G [Suspect]
     Active Substance: SULFAMETHOXAZOLE\TRIMETHOPRIM
     Indication: SKIN INFECTION
     Route: 048
     Dates: start: 20190923, end: 20191001

REACTIONS (3)
  - Mouth ulceration [None]
  - Immune thrombocytopenic purpura [None]
  - Rash [None]

NARRATIVE: CASE EVENT DATE: 20191001
